FAERS Safety Report 8312851-1 (Version None)
Quarter: 2012Q2

REPORT INFORMATION
  Report Type: 
  Country: None (occurrence: None)
  Receive Date: 20120424
  Receipt Date: 20120413
  Transmission Date: 20120825
  Serious: Yes (Other)
  Sender: FDA-Public Use
  Company Number: GER/UKI/10/0016417

PATIENT
  Age: 52 Year
  Sex: Female

DRUGS (2)
  1. LETROZOLE [Suspect]
     Indication: METASTASES TO BONE
     Dosage: 2.5 MG, ORAL
     Route: 048
     Dates: start: 20070501
  2. ZOMETA [Suspect]
     Indication: METASTASES TO BONE
     Dosage: 6 WEEKLY -12 WEEKLY,INTRAVENOUS (NOT OTHERWISE SPECIFIED)
     Dates: start: 20070601

REACTIONS (11)
  - EXPOSED BONE IN JAW [None]
  - BREAST CANCER METASTATIC [None]
  - IMPAIRED HEALING [None]
  - OSTEONECROSIS OF JAW [None]
  - CARDIAC SARCOIDOSIS [None]
  - NEOPLASM PROGRESSION [None]
  - TOOTH EXTRACTION [None]
  - BONE DISORDER [None]
  - ORAL DISORDER [None]
  - BACK PAIN [None]
  - OSTEONECROSIS [None]
